FAERS Safety Report 16608603 (Version 3)
Quarter: 2020Q2

REPORT INFORMATION
  Report Type: Spontaneous
  Country: US (occurrence: US)
  Receive Date: 20190722
  Receipt Date: 20200616
  Transmission Date: 20200713
  Serious: No
  Sender: FDA-Public Use
  Company Number: US-PFIZER INC-2018250427

PATIENT
  Age: 55 Year
  Sex: Female
  Weight: 104.33 kg

DRUGS (2)
  1. RELPAX [Suspect]
     Active Substance: ELETRIPTAN HYDROBROMIDE
     Indication: HEADACHE
     Dosage: 1 DF AS NEEDED (TAKE 1 TAB AT HEADACHE ONSET THEN 1 TAB 2 HOURS LATER)
     Route: 048
  2. RELPAX [Suspect]
     Active Substance: ELETRIPTAN HYDROBROMIDE
     Indication: MIGRAINE

REACTIONS (2)
  - Amnesia [Unknown]
  - Pain [Unknown]
